FAERS Safety Report 22129294 (Version 2)
Quarter: 2023Q1

REPORT INFORMATION
  Report Type: Spontaneous
  Country: US (occurrence: US)
  Receive Date: 20230323
  Receipt Date: 20230331
  Transmission Date: 20230417
  Serious: Yes (Hospitalization)
  Sender: FDA-Public Use
  Company Number: US-KYOWAKIRIN-2023BKK004218

PATIENT

DRUGS (7)
  1. CRYSVITA [Suspect]
     Active Substance: BUROSUMAB-TWZA
     Indication: Hypophosphataemia
     Dosage: UNK
     Route: 065
     Dates: start: 202212
  2. CRYSVITA [Suspect]
     Active Substance: BUROSUMAB-TWZA
     Dosage: UNK, RIGHT AND LEFT ARMS
     Route: 058
     Dates: start: 20230104
  3. CRYSVITA [Suspect]
     Active Substance: BUROSUMAB-TWZA
     Dosage: UNK, RIGHT AND LEFT ARMS
     Route: 058
     Dates: start: 20230104
  4. CRYSVITA [Suspect]
     Active Substance: BUROSUMAB-TWZA
     Dosage: UNK, RIGHT AND LEFT ARMS
     Route: 065
     Dates: start: 20230201
  5. CRYSVITA [Suspect]
     Active Substance: BUROSUMAB-TWZA
     Dosage: UNK, RIGHT AND LEFT ARMS
     Route: 065
     Dates: start: 20230201
  6. CRYSVITA [Suspect]
     Active Substance: BUROSUMAB-TWZA
     Dosage: UNK, RIGHT AND LEFT ARMS
     Route: 065
     Dates: start: 20230301
  7. CRYSVITA [Suspect]
     Active Substance: BUROSUMAB-TWZA
     Dosage: UNK, RIGHT AND LEFT ARMS
     Route: 065
     Dates: start: 20230301

REACTIONS (2)
  - Bone pain [Recovered/Resolved]
  - Off label use [Unknown]

NARRATIVE: CASE EVENT DATE: 20230303
